FAERS Safety Report 10061683 (Version 1)
Quarter: 2014Q2

REPORT INFORMATION
  Report Type: Spontaneous
  Country: US (occurrence: US)
  Receive Date: 20140407
  Receipt Date: 20140407
  Transmission Date: 20141212
  Serious: No
  Sender: FDA-Public Use
  Company Number: US-TARO-2013P1006948

PATIENT
  Age: 20 Year
  Sex: Male
  Weight: 86.18 kg

DRUGS (1)
  1. FLUOROURACIL TOPICAL CREAM USP 5% [Suspect]
     Indication: VITILIGO
     Route: 061
     Dates: start: 20120904, end: 201303

REACTIONS (5)
  - Application site pain [Recovered/Resolved]
  - Application site erythema [Recovered/Resolved]
  - Scab [Recovered/Resolved]
  - Skin exfoliation [Recovered/Resolved]
  - Off label use [Unknown]
